FAERS Safety Report 17206386 (Version 7)
Quarter: 2022Q2

REPORT INFORMATION
  Report Type: Report from Study
  Country: JP (occurrence: JP)
  Receive Date: 20191227
  Receipt Date: 20220609
  Transmission Date: 20220721
  Serious: Yes (Other)
  Sender: FDA-Public Use
  Company Number: JP-VIIVHC-JP2019JPN235910AA

PATIENT

DRUGS (9)
  1. ABACAVIR SULFATE\DOLUTEGRAVIR SODIUM\LAMIVUDINE [Suspect]
     Active Substance: ABACAVIR SULFATE\DOLUTEGRAVIR SODIUM\LAMIVUDINE
     Indication: HIV infection
     Dosage: 1 DF, 1D
     Route: 048
     Dates: start: 20150612, end: 20201023
  2. MITIGLINIDE CALCIUM HYDRATE\VOGLIBOSE [Concomitant]
     Active Substance: MITIGLINIDE CALCIUM HYDRATE\VOGLIBOSE
     Indication: Diabetes mellitus
     Dosage: UNK
  3. BROTIZOLAM OD TABLETS [Concomitant]
     Dosage: UNK
     Dates: end: 20190731
  4. SINGULAIR TABLETS [Concomitant]
     Dosage: UNK
  5. BILANOA TABLET [Concomitant]
     Dosage: UNK
  6. TRULICITY SUBCUTANEOUS INJECTION [Concomitant]
     Indication: Diabetes mellitus
     Dosage: UNK
     Dates: start: 20171221
  7. LUNESTA TABLETS [Concomitant]
     Dosage: UNK
     Dates: start: 20200206
  8. ZOLPIDEM TARTRATE OD TABLET [Concomitant]
     Dosage: UNK
     Dates: start: 20200206
  9. DOVATO [Concomitant]
     Active Substance: DOLUTEGRAVIR SODIUM\LAMIVUDINE
     Indication: HIV infection
     Dosage: 1 DF, 1D
     Route: 048
     Dates: start: 20201023

REACTIONS (1)
  - Diabetes mellitus [Not Recovered/Not Resolved]

NARRATIVE: CASE EVENT DATE: 20181220
